FAERS Safety Report 22228003 (Version 1)
Quarter: 2023Q2

REPORT INFORMATION
  Report Type: Spontaneous
  Country: FR (occurrence: FR)
  Receive Date: 20230419
  Receipt Date: 20230419
  Transmission Date: 20230721
  Serious: Yes (Hospitalization)
  Sender: FDA-Public Use
  Company Number: None

PATIENT
  Age: 37 Year
  Sex: Male
  Weight: 70.5 kg

DRUGS (2)
  1. ENTYVIO [Suspect]
     Active Substance: VEDOLIZUMAB
     Indication: Colitis ulcerative
     Dosage: UNK
     Route: 042
     Dates: start: 20221101, end: 20221101
  2. AMISULPRIDE [Suspect]
     Active Substance: AMISULPRIDE
     Indication: Delusional disorder, somatic type
     Dosage: 800 MILLIGRAM
     Route: 048
     Dates: start: 2010

REACTIONS (3)
  - Akathisia [Recovering/Resolving]
  - Suicidal ideation [Recovered/Resolved]
  - Fatigue [Recovering/Resolving]

NARRATIVE: CASE EVENT DATE: 20221108
